FAERS Safety Report 7700997-8 (Version None)
Quarter: 2011Q3

REPORT INFORMATION
  Report Type: 
  Country: None (occurrence: None)
  Receive Date: 20110822
  Receipt Date: 20110816
  Transmission Date: 20111222
  Serious: Yes (Other)
  Sender: FDA-Public Use
  Company Number: US-BAYER-2011-065298

PATIENT
  Sex: Male

DRUGS (1)
  1. SORAFENIB (RAF KINASE INHIBITOR) [Suspect]
     Indication: HEPATIC NEOPLASM MALIGNANT
     Dosage: 200 MG, BID
     Route: 048
     Dates: start: 20110611

REACTIONS (10)
  - ABSCESS [None]
  - RASH PRURITIC [None]
  - STOMATITIS [None]
  - RASH GENERALISED [None]
  - GLOSSODYNIA [None]
  - OEDEMA MOUTH [None]
  - NAUSEA [None]
  - LIP BLISTER [None]
  - ASTHENIA [None]
  - BLOOD PRESSURE INCREASED [None]
